FAERS Safety Report 17361869 (Version 1)
Quarter: 2020Q1

REPORT INFORMATION
  Report Type: Spontaneous
  Country: US (occurrence: US)
  Receive Date: 20200117
  Receipt Date: 20200117
  Transmission Date: 20200409
  Serious: No
  Sender: FDA-Public Use
  Company Number: None

PATIENT
  Age: 71 Year
  Sex: Female

DRUGS (1)
  1. GLEEVEC [Suspect]
     Active Substance: IMATINIB MESYLATE
     Route: 048
     Dates: start: 200901

REACTIONS (3)
  - Muscle spasms [None]
  - Intestinal haemorrhage [None]
  - Conjunctival oedema [None]

NARRATIVE: CASE EVENT DATE: 20200117
